FAERS Safety Report 8522349-3 (Version None)
Quarter: 2012Q3

REPORT INFORMATION
  Report Type: 
  Country: None (occurrence: None)
  Receive Date: 20120706
  Receipt Date: 20120622
  Transmission Date: 20120928
  Serious: Yes (Death)
  Sender: FDA-Public Use
  Company Number: TCI2012A03310

PATIENT
  Age: 76 Year
  Sex: Male

DRUGS (6)
  1. ORAL ANTIDIABETICS [Concomitant]
  2. ANGIOTENSIN II ANTAGONISTS [Concomitant]
  3. CALCIUM CHANNEL BLOCKERS [Concomitant]
  4. ACTOS [Suspect]
     Indication: TYPE 2 DIABETES MELLITUS
     Dosage: 15 MG (15 MG, 1 D) PER ORAL
     Route: 048
     Dates: start: 20080122, end: 20091124
  5. HMA COA REDUCTASE INHIBITORS [Concomitant]
  6. ANTIHYPERTENSIVES [Concomitant]

REACTIONS (1)
  - SUDDEN DEATH [None]
